FAERS Safety Report 9401231 (Version 1)
Quarter: 2013Q3

REPORT INFORMATION
  Report Type: Spontaneous
  Country: KR (occurrence: KR)
  Receive Date: 20130715
  Receipt Date: 20130715
  Transmission Date: 20140515
  Serious: Yes (Other)
  Sender: FDA-Public Use
  Company Number: KR-MYLANLABS-2013S1014830

PATIENT
  Age: 71 Year
  Sex: Male

DRUGS (1)
  1. BACLOFEN [Suspect]
     Indication: HICCUPS
     Route: 065

REACTIONS (1)
  - Encephalopathy [Recovering/Resolving]
